FAERS Safety Report 5695555-3 (Version None)
Quarter: 2008Q2

REPORT INFORMATION
  Report Type: 
  Country: None (occurrence: None)
  Receive Date: 20080407
  Receipt Date: 20080401
  Transmission Date: 20081010
  Serious: Yes (Hospitalization)
  Sender: FDA-Public Use
  Company Number: GB-BRISTOL-MYERS SQUIBB COMPANY-14134829

PATIENT
  Sex: Female

DRUGS (1)
  1. PRAVASTATIN [Suspect]

REACTIONS (2)
  - ASPIRATION [None]
  - GASTROSTOMY [None]
